FAERS Safety Report 20995137 (Version 1)
Quarter: 2022Q2

REPORT INFORMATION
  Report Type: Spontaneous
  Country: FR (occurrence: FR)
  Receive Date: 20220622
  Receipt Date: 20220622
  Transmission Date: 20220720
  Serious: Yes (Other)
  Sender: FDA-Public Use
  Company Number: FR-002147023-NVSC2022FR139273

PATIENT

DRUGS (1)
  1. RUXOLITINIB [Suspect]
     Active Substance: RUXOLITINIB
     Indication: Polycythaemia vera
     Dosage: 5 MG, BID 2 TABLETS PER DAY)
     Route: 048
     Dates: start: 201906

REACTIONS (1)
  - Dyspnoea at rest [Unknown]

NARRATIVE: CASE EVENT DATE: 20190601
